FAERS Safety Report 5020506-4 (Version None)
Quarter: 2006Q2

REPORT INFORMATION
  Report Type: 
  Country: None (occurrence: None)
  Receive Date: 20060601
  Receipt Date: 20060523
  Transmission Date: 20061013
  Serious: Yes (Hospitalization)
  Sender: FDA-Public Use
  Company Number: 2006034745

PATIENT
  Age: 47 Year
  Sex: Male

DRUGS (1)
  1. SUTENT [Suspect]
     Indication: GASTROINTESTINAL STROMAL TUMOUR
     Dosage: 50 MG (50 MG, INTERVAL:  4WE/2WE PAUSE), ORAL
     Route: 048
     Dates: start: 20050823, end: 20060307

REACTIONS (4)
  - ANAL FISSURE [None]
  - CONDITION AGGRAVATED [None]
  - CONSTIPATION [None]
  - PERIANAL ABSCESS [None]
